FAERS Safety Report 9640873 (Version 1)
Quarter: 2013Q4

REPORT INFORMATION
  Report Type: Spontaneous
  Country: US (occurrence: None)
  Receive Date: 20131022
  Receipt Date: 20131022
  Transmission Date: 20140711
  Serious: No
  Sender: FDA-Public Use
  Company Number: None

PATIENT
  Age: 57 Year
  Sex: Male

DRUGS (2)
  1. NEXAVAR 200 MG BAYER [Suspect]
     Indication: HEPATIC CANCER
     Route: 048
     Dates: start: 20130904
  2. NEXAVAR 200 MG BAYER [Suspect]
     Indication: COLON CANCER
     Route: 048
     Dates: start: 20130904

REACTIONS (3)
  - Skin exfoliation [None]
  - Skin exfoliation [None]
  - Erythema [None]
